FAERS Safety Report 14661522 (Version 2)
Quarter: 2018Q2

REPORT INFORMATION
  Report Type: Report from Study
  Country: US (occurrence: US)
  Receive Date: 20180320
  Receipt Date: 20180420
  Transmission Date: 20180711
  Serious: Yes (Hospitalization)
  Sender: FDA-Public Use
  Company Number: US-ACTELION-A-NJ2018-169328

PATIENT
  Age: 47 Year
  Sex: Female

DRUGS (13)
  1. FLUOXETINE [Concomitant]
     Active Substance: FLUOXETINE HYDROCHLORIDE
  2. ZERIT [Concomitant]
     Active Substance: STAVUDINE
  3. UPTRAVI [Concomitant]
     Active Substance: SELEXIPAG
     Indication: PULMONARY ARTERIAL HYPERTENSION
     Dosage: UNK
     Route: 048
  4. CYTOMEL [Concomitant]
     Active Substance: LIOTHYRONINE SODIUM
  5. FOLIC ACID. [Concomitant]
     Active Substance: FOLIC ACID
  6. IRON [Concomitant]
     Active Substance: IRON
  7. CARDIZEM LA [Concomitant]
     Active Substance: DILTIAZEM HYDROCHLORIDE
  8. SYNTHROID [Concomitant]
     Active Substance: LEVOTHYROXINE SODIUM
  9. ARTHROTEC [Concomitant]
     Active Substance: DICLOFENAC SODIUM\MISOPROSTOL
  10. ADCIRCA [Concomitant]
     Active Substance: TADALAFIL
  11. OPSUMIT [Suspect]
     Active Substance: MACITENTAN
     Indication: PULMONARY ARTERIAL HYPERTENSION
     Dosage: 10 MG, QD
     Route: 048
     Dates: start: 20170428
  12. CALCIUM [Concomitant]
     Active Substance: CALCIUM
  13. VALIUM [Concomitant]
     Active Substance: DIAZEPAM

REACTIONS (2)
  - Breast cancer [Not Recovered/Not Resolved]
  - Mastectomy [Recovering/Resolving]

NARRATIVE: CASE EVENT DATE: 20180225
